FAERS Safety Report 16744301 (Version 2)
Quarter: 2019Q3

REPORT INFORMATION
  Report Type: Spontaneous
  Country: FR (occurrence: FR)
  Receive Date: 20190827
  Receipt Date: 20190904
  Transmission Date: 20191005
  Serious: Yes (Other)
  Sender: FDA-Public Use
  Company Number: FR-AUROBINDO-AUR-APL-2019-056312

PATIENT

DRUGS (2)
  1. VALPROIC ACID. [Suspect]
     Active Substance: VALPROIC ACID
     Indication: BIPOLAR DISORDER
     Dosage: UNK
     Route: 065
  2. VENLAFAXINE [Suspect]
     Active Substance: VENLAFAXINE HYDROCHLORIDE
     Indication: BIPOLAR DISORDER
     Dosage: UNK
     Route: 065

REACTIONS (15)
  - Paraesthesia [Recovering/Resolving]
  - Dysarthria [Recovering/Resolving]
  - Myoclonus [Recovering/Resolving]
  - Tremor [Recovering/Resolving]
  - Cerebellar syndrome [Recovering/Resolving]
  - Areflexia [Recovering/Resolving]
  - Dysmetria [Recovering/Resolving]
  - Cerebellar ataxia [Recovering/Resolving]
  - Resting tremor [Recovering/Resolving]
  - Drug ineffective [Unknown]
  - Condition aggravated [Recovering/Resolving]
  - Quadriparesis [Recovering/Resolving]
  - Ataxia [Recovering/Resolving]
  - Action tremor [Recovering/Resolving]
  - Chronic inflammatory demyelinating polyradiculoneuropathy [Recovering/Resolving]
